FAERS Safety Report 6855795-4 (Version None)
Quarter: 2010Q3

REPORT INFORMATION
  Report Type: 
  Country: None (occurrence: None)
  Receive Date: 20100719
  Receipt Date: 20100616
  Transmission Date: 20110219
  Serious: No
  Sender: FDA-Public Use
  Company Number: US-BAYER-201017134BCC

PATIENT
  Age: 73 Year
  Sex: Female
  Weight: 86 kg

DRUGS (6)
  1. ALEVE [Suspect]
     Indication: BACK PAIN
     Route: 048
  2. COZAAR [Concomitant]
     Route: 065
  3. LIPITOR [Concomitant]
     Route: 065
  4. DIURETIC [Concomitant]
     Route: 065
  5. GENERIC OF TOPROL [Concomitant]
     Route: 065
  6. METFORMIN HCL [Concomitant]
     Route: 065

REACTIONS (2)
  - BACK PAIN [None]
  - PAIN IN EXTREMITY [None]
